FAERS Safety Report 25930354 (Version 3)
Quarter: 2025Q4

REPORT INFORMATION
  Report Type: Spontaneous
  Country: US (occurrence: US)
  Receive Date: 20251016
  Receipt Date: 20251021
  Transmission Date: 20260118
  Serious: No
  Sender: PFIZER
  Company Number: US-PFIZER INC-202500110230

PATIENT
  Age: 45 Year
  Sex: Female

DRUGS (5)
  1. BRAFTOVI [Interacting]
     Active Substance: ENCORAFENIB
     Indication: Colon cancer
     Dosage: 150 MG (TAKE ONE TABLET BY MOUTH DAILY)
     Route: 048
  2. BRAFTOVI [Interacting]
     Active Substance: ENCORAFENIB
     Dosage: TAKE 300 MG BY MOUTH ONCE DAILY
     Route: 048
  3. BRAFTOVI [Interacting]
     Active Substance: ENCORAFENIB
     Dosage: 300 MG, DAILY
     Route: 048
  4. OLANZAPINE [Interacting]
     Active Substance: OLANZAPINE
  5. FLUCONAZOLE [Concomitant]
     Active Substance: FLUCONAZOLE
     Dosage: UNK

REACTIONS (5)
  - Product prescribing issue [Unknown]
  - Off label use [Unknown]
  - Off label use [Unknown]
  - Product use issue [Unknown]
  - Potentiating drug interaction [Unknown]

NARRATIVE: CASE EVENT DATE: 20251014
